FAERS Safety Report 19894972 (Version 1)
Quarter: 2021Q3

REPORT INFORMATION
  Report Type: Spontaneous
  Country: US (occurrence: US)
  Receive Date: 20210928
  Receipt Date: 20210928
  Transmission Date: 20211014
  Serious: No
  Sender: FDA-Public Use
  Company Number: US-CSPC-NBP PHARMACEUTICAL CO., LTD.-2118931

PATIENT
  Sex: Female

DRUGS (1)
  1. BENZONATATE. [Suspect]
     Active Substance: BENZONATATE
     Route: 048

REACTIONS (3)
  - Jaw disorder [Unknown]
  - Toothache [Unknown]
  - Hypoaesthesia oral [Unknown]

NARRATIVE: CASE EVENT DATE: 20201113
